FAERS Safety Report 8283931-4 (Version None)
Quarter: 2012Q2

REPORT INFORMATION
  Report Type: 
  Country: None (occurrence: None)
  Receive Date: 20120413
  Receipt Date: 20120406
  Transmission Date: 20120825
  Serious: Yes (Other)
  Sender: FDA-Public Use
  Company Number: US-BAYER-2012-034277

PATIENT
  Age: 93 Year
  Sex: Male

DRUGS (4)
  1. CARDIOVASCULAR SYSTEM DRUGS [Concomitant]
  2. ASPIRIN [Concomitant]
  3. ALEVE (CAPLET) [Suspect]
     Indication: ANALGESIC THERAPY
     Dosage: 1 DF, QD
     Route: 048
     Dates: start: 20120404, end: 20120406
  4. URINE PILL [Concomitant]

REACTIONS (2)
  - HAEMOPTYSIS [None]
  - NAUSEA [None]
